FAERS Safety Report 8908984 (Version 1)
Quarter: 2012Q4

REPORT INFORMATION
  Report Type: 
  Country: US (occurrence: US)
  Receive Date: 20121113
  Receipt Date: 20121113
  Transmission Date: 20130627
  Serious: No
  Sender: FDA-Public Use
  Company Number: US-AMGEN-USASP2012011652

PATIENT
  Age: 55 Year
  Sex: Female
  Weight: 90.7 kg

DRUGS (5)
  1. ENBREL [Suspect]
     Indication: PRODUCT USED FOR UNKNOWN INDICATION
     Dosage: 50 mg, qwk
     Route: 058
  2. VITAMIN C                          /00008001/ [Concomitant]
     Dosage: 500 mg, UNK
  3. NORCO [Concomitant]
  4. HYDROCHLOROTHIAZIDE W/TRIAMTERENE [Concomitant]
  5. B12                                /00056201/ [Concomitant]
     Dosage: 1 mg, UNK

REACTIONS (2)
  - Tendon operation [Unknown]
  - Joint injury [Unknown]
